FAERS Safety Report 25533425 (Version 2)
Quarter: 2025Q3

REPORT INFORMATION
  Report Type: Report from Study
  Country: US (occurrence: US)
  Receive Date: 20250709
  Receipt Date: 20250826
  Transmission Date: 20251020
  Serious: Yes (Other)
  Sender: SUNOVION
  Company Number: US-SUMITOMO PHARMA SWITZERLAND GMBH-2025SPA007701

PATIENT
  Age: 81 Year
  Sex: Male

DRUGS (10)
  1. ORGOVYX [Suspect]
     Active Substance: RELUGOLIX
     Indication: Prostate cancer
     Route: 048
  2. ORGOVYX [Suspect]
     Active Substance: RELUGOLIX
     Route: 048
  3. TYLENOL [Concomitant]
     Active Substance: ACETAMINOPHEN
  4. DONEPEZIL [Concomitant]
     Active Substance: DONEPEZIL
  5. IBUPROFEN [Concomitant]
     Active Substance: IBUPROFEN
  6. MELATONIN [Concomitant]
     Active Substance: MELATONIN
  7. NUBEQA [Concomitant]
     Active Substance: DAROLUTAMIDE
  8. VITAMINS [Concomitant]
     Active Substance: VITAMINS
  9. ACETAMINOPHEN [Concomitant]
     Active Substance: ACETAMINOPHEN
  10. IRON [Concomitant]
     Active Substance: IRON

REACTIONS (3)
  - Dementia [Unknown]
  - Madarosis [Unknown]
  - Product dose omission issue [Recovered/Resolved]
